FAERS Safety Report 12333785 (Version 6)
Quarter: 2019Q2

REPORT INFORMATION
  Report Type: Spontaneous
  Country: US (occurrence: US)
  Receive Date: 20160504
  Receipt Date: 20190509
  Transmission Date: 20190711
  Serious: No
  Sender: FDA-Public Use
  Company Number: US-ROCHE-1695099

PATIENT
  Sex: Male

DRUGS (13)
  1. DONEPEZIL. [Concomitant]
     Active Substance: DONEPEZIL
  2. TEMAZEPAM. [Concomitant]
     Active Substance: TEMAZEPAM
  3. PREDNISONE. [Concomitant]
     Active Substance: PREDNISONE
  4. THEOPHYLLINE [Concomitant]
     Active Substance: THEOPHYLLINE ANHYDROUS
  5. SIMVASTATIN. [Concomitant]
     Active Substance: SIMVASTATIN
  6. PROAIR HFA [Concomitant]
     Active Substance: ALBUTEROL SULFATE
     Dosage: INHALER
     Route: 065
  7. ESBRIET [Suspect]
     Active Substance: PIRFENIDONE
     Indication: CHRONIC OBSTRUCTIVE PULMONARY DISEASE
     Route: 048
     Dates: start: 20150724
  8. ESCITALOPRAM [Concomitant]
     Active Substance: ESCITALOPRAM OXALATE
  9. ESBRIET [Suspect]
     Active Substance: PIRFENIDONE
     Indication: PULMONARY FIBROSIS
     Route: 048
     Dates: start: 201507
  10. ESBRIET [Suspect]
     Active Substance: PIRFENIDONE
     Route: 048
     Dates: start: 20160416
  11. NAMENDA [Concomitant]
     Active Substance: MEMANTINE HYDROCHLORIDE
  12. MONTELUKAST [Concomitant]
     Active Substance: MONTELUKAST SODIUM
  13. FAMOTIDINE. [Concomitant]
     Active Substance: FAMOTIDINE

REACTIONS (7)
  - Amnesia [Unknown]
  - Dementia [Unknown]
  - Insomnia [Unknown]
  - Dry eye [Unknown]
  - Drug ineffective [Unknown]
  - Fatigue [Unknown]
  - Gait disturbance [Unknown]
